FAERS Safety Report 23557625 (Version 1)
Quarter: 2024Q1

REPORT INFORMATION
  Report Type: Spontaneous
  Country: US (occurrence: US)
  Receive Date: 20240223
  Receipt Date: 20240223
  Transmission Date: 20240410
  Serious: No
  Sender: FDA-Public Use
  Company Number: US-MIMS-BCONMC-2011

PATIENT
  Age: 53 Year
  Sex: Female
  Weight: 113.38 kg

DRUGS (1)
  1. INSULIN GLARGINE [Suspect]
     Active Substance: INSULIN GLARGINE
     Dosage: 72 UNITS/ML QD
     Route: 058

REACTIONS (1)
  - Device issue [Unknown]
